FAERS Safety Report 10380943 (Version 2)
Quarter: 2014Q3

REPORT INFORMATION
  Report Type: Spontaneous
  Country: US (occurrence: None)
  Receive Date: 20140808
  Receipt Date: 20140908
  Transmission Date: 20150326
  Serious: Yes (Other)
  Sender: FDA-Public Use
  Company Number: ABR_01759_2014

PATIENT
  Age: 64 Year
  Sex: Female
  Weight: 67.13 kg

DRUGS (2)
  1. EDARBYCLOR [Suspect]
     Active Substance: AZILSARTAN KAMEDOXOMIL\CHLORTHALIDONE
     Indication: HYPERTENSION
     Dosage: ([40/12.5 MG ONCE DAILY] ORAL)
     Route: 048
     Dates: start: 20140710, end: 20140716
  2. CARVEDILOL (UNKNOWN) [Concomitant]
     Active Substance: CARVEDILOL

REACTIONS (5)
  - Asthenia [None]
  - Fatigue [None]
  - Chest discomfort [None]
  - Syncope [None]
  - Heart rate decreased [None]

NARRATIVE: CASE EVENT DATE: 20140714
